FAERS Safety Report 11103109 (Version 1)
Quarter: 2015Q2

REPORT INFORMATION
  Report Type: Spontaneous
  Country: DE (occurrence: DE)
  Receive Date: 20150511
  Receipt Date: 20150511
  Transmission Date: 20150821
  Serious: Yes (Other)
  Sender: FDA-Public Use
  Company Number: DE-PFIZER INC-2015157404

PATIENT
  Sex: Female

DRUGS (1)
  1. INSPRA [Suspect]
     Active Substance: EPLERENONE
     Dosage: UNK
     Dates: start: 201504

REACTIONS (2)
  - Haemorrhage [Unknown]
  - Condition aggravated [Unknown]
